FAERS Safety Report 4556023-5 (Version None)
Quarter: 2005Q1

REPORT INFORMATION
  Report Type: 
  Country: None (occurrence: None)
  Receive Date: 20050114
  Receipt Date: 20041221
  Transmission Date: 20050727
  Serious: Yes (Life-Threatening, Hospitalization, Disabling, Other)
  Sender: FDA-Public Use
  Company Number: 2004095487

PATIENT
  Age: 78 Year
  Sex: Female

DRUGS (9)
  1. CELEBREX [Suspect]
     Indication: ARTHRITIS
     Dosage: SEE IMAGE
     Dates: start: 20041013, end: 20041015
  2. CELEBREX [Suspect]
     Indication: ARTHRITIS
     Dosage: SEE IMAGE
     Dates: start: 20041013
  3. CELEBREX [Suspect]
     Indication: ARTHRITIS
     Dosage: SEE IMAGE
     Dates: start: 20041022
  4. ANASTROZOLE (ANASTROZOLE) [Concomitant]
  5. LANSOPRAZOLE [Concomitant]
  6. LISINOPRIL [Concomitant]
  7. HYDROCHLOROTHIAZIDE [Concomitant]
  8. SERETIDE MITE (FLUTICASONE PROPIONATE, SALMETEROL XINAFOATE) [Concomitant]
  9. ROSUVASTATIN (ROSUVASTATIN) [Concomitant]

REACTIONS (15)
  - ANXIETY [None]
  - CHEST DISCOMFORT [None]
  - CHRONIC OBSTRUCTIVE AIRWAYS DISEASE EXACERBATED [None]
  - DRUG HYPERSENSITIVITY [None]
  - HYPERPLASIA [None]
  - HYPOTENSION [None]
  - NASAL OEDEMA [None]
  - NASOPHARYNGEAL DISORDER [None]
  - OXYGEN SATURATION DECREASED [None]
  - PROCEDURAL COMPLICATION [None]
  - PRURITUS [None]
  - RESPIRATORY RATE INCREASED [None]
  - TACHYCARDIA [None]
  - UPPER RESPIRATORY TRACT INFECTION [None]
  - VOMITING [None]
